FAERS Safety Report 4578005-X (Version None)
Quarter: 2005Q1

REPORT INFORMATION
  Report Type: 
  Country: None (occurrence: None)
  Receive Date: 20050203
  Receipt Date: 20050203
  Transmission Date: 20050727
  Serious: Yes (Other)
  Sender: FDA-Public Use
  Company Number: None

PATIENT
  Age: 70 Year
  Sex: Female
  Weight: 56.6996 kg

DRUGS (2)
  1. BEXTRA [Suspect]
     Indication: BACK PAIN
  2. BEXTRA [Suspect]
     Indication: OSTEOARTHRITIS

REACTIONS (2)
  - PRURITUS [None]
  - RASH [None]
